FAERS Safety Report 5590853-6 (Version None)
Quarter: 2008Q1

REPORT INFORMATION
  Report Type: 
  Country: None (occurrence: None)
  Receive Date: 20080110
  Receipt Date: 20071226
  Transmission Date: 20080703
  Serious: Yes (Hospitalization)
  Sender: FDA-Public Use
  Company Number: DSA_31113_2008

PATIENT
  Age: 73 Year
  Sex: Female

DRUGS (6)
  1. MONO-TILDIEM (MONO-TILDIEM - DILTIAZEM HYDROCHLORIDE) (NOT SPECIFIED) [Suspect]
     Indication: DRUG USE FOR UNKNOWN INDICATION
     Dosage: (300 MG ORAL)
     Route: 048
     Dates: end: 20071107
  2. DIGOXIN [Suspect]
     Indication: ARRHYTHMIA
     Dosage: (0.25 MG ORAL)
     Route: 048
     Dates: end: 20071107
  3. LASILIX /00032601/ [Concomitant]
  4. INIPOMP /01263201/ [Concomitant]
  5. EUPRESSYL /00631801/ [Concomitant]
  6. NOVONORM [Concomitant]

REACTIONS (3)
  - BLOOD PRESSURE INCREASED [None]
  - BRADYCARDIA [None]
  - GASTROINTESTINAL NEOPLASM [None]
